FAERS Safety Report 5498782-3 (Version None)
Quarter: 2007Q4

REPORT INFORMATION
  Report Type: 
  Country: None (occurrence: None)
  Receive Date: 20071026
  Receipt Date: 20070718
  Transmission Date: 20080405
  Serious: No
  Sender: FDA-Public Use
  Company Number: A0664820A

PATIENT
  Age: 76 Year
  Sex: Male

DRUGS (8)
  1. ADVAIR DISKUS 100/50 [Suspect]
     Indication: DRUG USE FOR UNKNOWN INDICATION
     Dosage: 1PUFF TWICE PER DAY
     Route: 055
     Dates: start: 20070717
  2. GLIPIZIDE [Concomitant]
  3. PRAVASTATIN [Concomitant]
  4. CLOPIDOGREL [Concomitant]
  5. TOPROL-XL [Concomitant]
  6. FLOMAX [Concomitant]
  7. UNKNOWN MEDICATION [Concomitant]
  8. LYRICA [Concomitant]

REACTIONS (1)
  - EYE PAIN [None]
